FAERS Safety Report 7247896-6 (Version None)
Quarter: 2011Q1

REPORT INFORMATION
  Report Type: 
  Country: None (occurrence: None)
  Receive Date: 20110127
  Receipt Date: 20110122
  Transmission Date: 20110831
  Serious: Yes (Hospitalization, Congenital Anomaly)
  Sender: FDA-Public Use
  Company Number: US-PFIZER INC-2011015913

PATIENT
  Sex: Female
  Weight: 61.4 kg

DRUGS (1)
  1. SOMATROPIN RDNA [Suspect]
     Dosage: 3 MG, 1X/DAY
     Route: 058
     Dates: start: 19960101, end: 20081101

REACTIONS (1)
  - SCOLIOSIS [None]
